FAERS Safety Report 24813649 (Version 1)
Quarter: 2025Q1

REPORT INFORMATION
  Report Type: Spontaneous
  Country: US (occurrence: US)
  Receive Date: 20250107
  Receipt Date: 20250107
  Transmission Date: 20250409
  Serious: No
  Sender: ROCHE
  Company Number: US-ROCHE-10000170563

PATIENT
  Age: 66 Year
  Sex: Female

DRUGS (1)
  1. XOLAIR [Suspect]
     Active Substance: OMALIZUMAB
     Indication: Product used for unknown indication
     Route: 058

REACTIONS (6)
  - Bone pain [Unknown]
  - Myalgia [Unknown]
  - Pain in extremity [Unknown]
  - Arthralgia [Unknown]
  - Pain [Unknown]
  - Intercepted product storage error [Unknown]
